FAERS Safety Report 14581368 (Version 1)
Quarter: 2018Q1

REPORT INFORMATION
  Report Type: Report from Study
  Country: US (occurrence: US)
  Receive Date: 20180228
  Receipt Date: 20180228
  Transmission Date: 20180509
  Serious: Yes (Hospitalization)
  Sender: FDA-Public Use
  Company Number: US-GILEAD-2018-0323434

PATIENT
  Age: 56 Year
  Sex: Female

DRUGS (21)
  1. PANTOPRAZOLE [Concomitant]
     Active Substance: PANTOPRAZOLE
  2. ELMIRON [Concomitant]
     Active Substance: PENTOSAN POLYSULFATE SODIUM
  3. COENZYME Q10 [Concomitant]
     Active Substance: UBIDECARENONE
  4. METHIMAZOLE. [Concomitant]
     Active Substance: METHIMAZOLE
  5. LEVOTHYROXINE. [Concomitant]
     Active Substance: LEVOTHYROXINE
  6. ESTRADIOL. [Concomitant]
     Active Substance: ESTRADIOL
  7. PROGESTERONE. [Concomitant]
     Active Substance: PROGESTERONE
  8. SILDENAFIL. [Concomitant]
     Active Substance: SILDENAFIL
  9. MELATONIN [Concomitant]
     Active Substance: MELATONIN
  10. LIOTHYRONINE [Concomitant]
     Active Substance: LIOTHYRONINE
  11. KRILL OIL [Concomitant]
     Active Substance: DIETARY SUPPLEMENT
  12. CALCIUM [Concomitant]
     Active Substance: CALCIUM
  13. AMBRISENTAN [Suspect]
     Active Substance: AMBRISENTAN
     Indication: PULMONARY ARTERIAL HYPERTENSION
     Dosage: 10 MG, QD
     Route: 065
     Dates: start: 20170808
  14. PREGNENOLONE [Concomitant]
     Active Substance: PREGNENOLONE
  15. MELOXICAM. [Concomitant]
     Active Substance: MELOXICAM
  16. VITAMIN E                          /00110501/ [Concomitant]
     Active Substance: TOCOPHEROL
  17. MULTIVITAMIN                       /00097801/ [Concomitant]
     Active Substance: VITAMINS
  18. ASPIRIN                            /00002701/ [Concomitant]
     Active Substance: ASPIRIN
  19. VITAMIN D3 [Concomitant]
     Active Substance: CHOLECALCIFEROL
  20. MECLIZINE [Concomitant]
     Active Substance: MECLIZINE HYDROCHLORIDE
  21. DHEA [Concomitant]
     Active Substance: PRASTERONE

REACTIONS (1)
  - Hernia [Recovered/Resolved]

NARRATIVE: CASE EVENT DATE: 201801
